FAERS Safety Report 6440204-X (Version None)
Quarter: 2009Q4

REPORT INFORMATION
  Report Type: 
  Country: None (occurrence: None)
  Receive Date: 20091113
  Receipt Date: 20090909
  Transmission Date: 20100525
  Serious: No
  Sender: FDA-Public Use
  Company Number: A0806562A

PATIENT
  Age: 72 Year
  Sex: Male

DRUGS (10)
  1. CARVEDILOL [Suspect]
     Dosage: 6.25MG TWICE PER DAY
     Route: 048
     Dates: start: 20090601, end: 20090601
  2. FUROSEMIDE [Concomitant]
  3. COUMADIN [Concomitant]
  4. DIOVAN [Concomitant]
  5. TAKA-DIASTASE [Concomitant]
  6. PROBON [Concomitant]
  7. POTASSIUM CHLORIDE [Concomitant]
  8. NIACIN [Concomitant]
  9. GLUCOSAMINE CHONDRITIN [Concomitant]
  10. MULTIVITAMIN [Concomitant]

REACTIONS (2)
  - DRUG INEFFECTIVE [None]
  - FATIGUE [None]
